FAERS Safety Report 4441774-3 (Version None)
Quarter: 2004Q3

REPORT INFORMATION
  Report Type: 
  Country: None (occurrence: None)
  Receive Date: 20040728
  Receipt Date: 20040507
  Transmission Date: 20050211
  Serious: No
  Sender: FDA-Public Use
  Company Number: USA040567015

PATIENT
  Age: 45 Year
  Sex: Female

DRUGS (1)
  1. STRATTERA [Suspect]
     Dosage: 25 MG/1 DAY

REACTIONS (3)
  - ASTHENIA [None]
  - MUSCLE FATIGUE [None]
  - SYSTEMIC LUPUS ERYTHEMATOSUS [None]
